FAERS Safety Report 25358771 (Version 2)
Quarter: 2025Q2

REPORT INFORMATION
  Report Type: Spontaneous
  Country: US (occurrence: US)
  Receive Date: 20250526
  Receipt Date: 20250623
  Transmission Date: 20250716
  Serious: Yes (Hospitalization, Other)
  Sender: SANOFI AVENTIS
  Company Number: US-SA-2025SA139242

PATIENT
  Age: 66 Year
  Sex: Female
  Weight: 71.36 kg

DRUGS (2)
  1. DUPIXENT [Suspect]
     Active Substance: DUPILUMAB
     Indication: Illness
     Dosage: 1 DF, QOW
     Route: 058
     Dates: end: 20250429
  2. OXYCODONE [Suspect]
     Active Substance: OXYCODONE

REACTIONS (4)
  - Colorectal cancer [Unknown]
  - Pruritus [Unknown]
  - Eczema [Unknown]
  - Surgery [Unknown]

NARRATIVE: CASE EVENT DATE: 20241029
